FAERS Safety Report 11343128 (Version 1)
Quarter: 2015Q3

REPORT INFORMATION
  Report Type: Spontaneous
  Country: GB (occurrence: GB)
  Receive Date: 20150806
  Receipt Date: 20150806
  Transmission Date: 20151125
  Serious: Yes (Hospitalization, Other)
  Sender: FDA-Public Use
  Company Number: GB-ALEMBIC PHARMACEUTICALS LIMITED-2015SCAL000449

PATIENT
  Age: 31 Year
  Sex: Male

DRUGS (6)
  1. CLONIDINE HYDROCHLORIDE. [Suspect]
     Active Substance: CLONIDINE HYDROCHLORIDE
     Dosage: 90 MCG/HOUR
  2. CLONIDINE HYDROCHLORIDE. [Suspect]
     Active Substance: CLONIDINE HYDROCHLORIDE
     Dosage: 600 MCG, QID
     Route: 048
  3. ALFENTANIL. [Concomitant]
     Active Substance: ALFENTANIL
     Indication: LIGHT ANAESTHESIA
     Dosage: UNK
  4. MIDAZOLAM [Concomitant]
     Active Substance: MIDAZOLAM\MIDAZOLAM HYDROCHLORIDE
     Indication: LIGHT ANAESTHESIA
     Dosage: UNK
  5. CLONIDINE HYDROCHLORIDE. [Suspect]
     Active Substance: CLONIDINE HYDROCHLORIDE
     Indication: AGITATION
     Dosage: 120 MCG/HOUR
  6. PROPOFOL. [Concomitant]
     Active Substance: PROPOFOL
     Indication: LIGHT ANAESTHESIA
     Dosage: UNK

REACTIONS (10)
  - C-reactive protein increased [Recovered/Resolved]
  - Lacrimation increased [Recovered/Resolved]
  - Off label use [Unknown]
  - Drug withdrawal syndrome [Recovered/Resolved]
  - Hypertensive crisis [Recovered/Resolved]
  - Hyperthermia [Recovered/Resolved]
  - White blood cell count increased [Recovered/Resolved]
  - Acute respiratory distress syndrome [Recovering/Resolving]
  - Acute pulmonary oedema [Recovering/Resolving]
  - Respiratory failure [Recovering/Resolving]
